FAERS Safety Report 19507794 (Version 5)
Quarter: 2021Q3

REPORT INFORMATION
  Report Type: Report from Study
  Country: BR (occurrence: BR)
  Receive Date: 20210708
  Receipt Date: 20210803
  Transmission Date: 20211014
  Serious: Yes (Death, Hospitalization, Other)
  Sender: FDA-Public Use
  Company Number: NVSC2021BR153321

PATIENT
  Sex: Female
  Weight: 38 kg

DRUGS (3)
  1. DIOVAN [Suspect]
     Active Substance: VALSARTAN
     Dosage: 1 DF, QD (STARTED ABOUT 10 YEARS AGO)
     Route: 048
     Dates: end: 2018
  2. DIOVAN [Suspect]
     Active Substance: VALSARTAN
     Indication: HYPERTENSION
     Dosage: UNK
     Route: 065
     Dates: end: 2017
  3. DIOVAN [Suspect]
     Active Substance: VALSARTAN
     Dosage: UNK, STARTED MANY YEARS AGO
     Route: 065

REACTIONS (14)
  - Aphonia [Fatal]
  - Pneumonia [Fatal]
  - Asthenia [Not Recovered/Not Resolved]
  - Gait inability [Fatal]
  - Tuberculosis [Recovered/Resolved]
  - Anaemia [Fatal]
  - Cerebrovascular accident [Recovered/Resolved with Sequelae]
  - Feeding disorder [Fatal]
  - Mouth haemorrhage [Fatal]
  - Respiratory failure [Fatal]
  - Malaise [Not Recovered/Not Resolved]
  - Cerebrovascular accident [Fatal]
  - Cardiac failure [Fatal]
  - Tuberculosis [Not Recovered/Not Resolved]

NARRATIVE: CASE EVENT DATE: 2017
